FAERS Safety Report 8386823-5 (Version None)
Quarter: 2012Q2

REPORT INFORMATION
  Report Type: 
  Country: None (occurrence: None)
  Receive Date: 20120525
  Receipt Date: 20120514
  Transmission Date: 20120825
  Serious: Yes (Other)
  Sender: FDA-Public Use
  Company Number: US-VIROPHARMA INCORPORATED-20120507CINRY2945

PATIENT
  Sex: Female

DRUGS (5)
  1. DEMEROL [Concomitant]
     Indication: PRODUCT USED FOR UNKNOWN INDICATION
     Dosage: UNKNOWN
     Route: 065
  2. CINRYZE [Suspect]
     Indication: HEREDITARY ANGIOEDEMA
     Dates: start: 20120401
  3. UNSPECIFIED THYROID MEDICATION [Concomitant]
     Indication: HYPOTHYROIDISM
     Dosage: UNKNOWN
     Route: 065
  4. DEXILANT [Concomitant]
     Indication: GASTRIC ULCER
  5. PREDNISONE TAB [Concomitant]
     Indication: HEREDITARY ANGIOEDEMA
     Route: 065

REACTIONS (1)
  - LYMPHOMA [None]
